FAERS Safety Report 9758065 (Version 3)
Quarter: 2013Q4

REPORT INFORMATION
  Report Type: Report from Study
  Country: DE (occurrence: DE)
  Receive Date: 20131216
  Receipt Date: 20131224
  Transmission Date: 20140711
  Serious: Yes (Hospitalization)
  Sender: FDA-Public Use
  Company Number: DE-JNJFOC-20131205612

PATIENT
  Age: 50 Year
  Sex: Female
  Weight: 64 kg

DRUGS (5)
  1. REMICADE [Suspect]
     Indication: COLITIS ULCERATIVE
     Route: 042
     Dates: start: 20100413, end: 20100916
  2. METHOTREXATE [Concomitant]
     Indication: COLITIS ULCERATIVE
     Route: 058
     Dates: start: 20130311, end: 201310
  3. HUMIRA [Concomitant]
     Indication: COLITIS ULCERATIVE
     Route: 058
     Dates: start: 20111122
  4. PANTOZOL [Concomitant]
     Indication: ACIDOSIS
     Route: 048
     Dates: start: 200908, end: 201310
  5. FOLIC ACID [Concomitant]
     Indication: VITAMIN B COMPLEX DEFICIENCY
     Route: 048
     Dates: start: 20130715, end: 20130723

REACTIONS (2)
  - Trigeminal neuralgia [Recovered/Resolved]
  - Herpes zoster [Recovered/Resolved]
